FAERS Safety Report 5853277-X (Version None)
Quarter: 2008Q3

REPORT INFORMATION
  Report Type: 
  Country: None (occurrence: None)
  Receive Date: 20080821
  Receipt Date: 20080813
  Transmission Date: 20090109
  Serious: Yes (Hospitalization, Other)
  Sender: FDA-Public Use
  Company Number: US-AMGEN-QUU301423

PATIENT
  Sex: Female

DRUGS (2)
  1. ENBREL [Suspect]
     Indication: RHEUMATOID ARTHRITIS
     Route: 058
  2. ARAVA [Concomitant]

REACTIONS (8)
  - ARTHRALGIA [None]
  - DEVICE FAILURE [None]
  - ERYTHEMA [None]
  - GAIT DISTURBANCE [None]
  - JOINT FLUID DRAINAGE [None]
  - JOINT SWELLING [None]
  - KNEE ARTHROPLASTY [None]
  - URINARY TRACT INFECTION [None]
